FAERS Safety Report 8528417-4 (Version None)
Quarter: 2012Q3

REPORT INFORMATION
  Report Type: 
  Country: None (occurrence: None)
  Receive Date: 20120722
  Receipt Date: 20120615
  Transmission Date: 20120928
  Serious: No
  Sender: FDA-Public Use
  Company Number: US-TEVA-343488USA

PATIENT
  Sex: Male

DRUGS (1)
  1. CLONIDINE [Suspect]
     Dosage: .2 MILLIGRAM;

REACTIONS (2)
  - DRUG INEFFECTIVE [None]
  - HYPERTENSION [None]
